FAERS Safety Report 7954556-2 (Version None)
Quarter: 2011Q4

REPORT INFORMATION
  Report Type: 
  Country: None (occurrence: None)
  Receive Date: 20111202
  Receipt Date: 20111122
  Transmission Date: 20120403
  Serious: Yes (Other)
  Sender: FDA-Public Use
  Company Number: PHHY2010JP59719

PATIENT
  Sex: Male
  Weight: 62 kg

DRUGS (8)
  1. ZOLPIDEM [Concomitant]
     Dosage: 5 MG, UNK
     Route: 048
     Dates: start: 20110106, end: 20110113
  2. VALSARTAN [Suspect]
     Dosage: 40 MG, QD
     Route: 048
     Dates: start: 20090609
  3. LANSOPRAZOLE [Concomitant]
     Dosage: 15 MG, UNK
     Route: 048
     Dates: start: 20110106, end: 20110113
  4. NORVASC [Concomitant]
     Indication: HYPERTENSION
     Dosage: 2.5 MG, UNK
     Route: 048
     Dates: start: 20101211
  5. DIOVAN HCT [Concomitant]
     Indication: HYPERTENSION
     Dosage: 1 DF, UNK
     Route: 048
     Dates: start: 20100609
  6. VOLTAREN [Concomitant]
     Dosage: 50 MG, UNK
     Route: 054
     Dates: start: 20110106, end: 20110113
  7. VALSARTAN [Suspect]
     Dosage: 40 MG, QD
     Route: 048
     Dates: start: 20090110, end: 20090525
  8. VALSARTAN [Suspect]
     Dosage: 80 MG, DAILY
     Route: 048
     Dates: start: 20090526, end: 20090608

REACTIONS (1)
  - BLOOD CREATINE PHOSPHOKINASE INCREASED [None]
